FAERS Safety Report 8175435-4 (Version None)
Quarter: 2012Q1

REPORT INFORMATION
  Report Type: 
  Country: None (occurrence: None)
  Receive Date: 20120229
  Receipt Date: 20120221
  Transmission Date: 20120608
  Serious: Yes (Other)
  Sender: FDA-Public Use
  Company Number: US-ASTRAZENECA-2010SE56537

PATIENT
  Age: 67 Year
  Sex: Female

DRUGS (2)
  1. PRILOSEC [Concomitant]
     Route: 048
  2. NEXIUM [Suspect]
     Route: 048

REACTIONS (4)
  - PATELLA FRACTURE [None]
  - FALL [None]
  - COLITIS ULCERATIVE [None]
  - FIBROMYALGIA [None]
